FAERS Safety Report 5165890-6 (Version None)
Quarter: 2006Q4

REPORT INFORMATION
  Report Type: 
  Country: None (occurrence: None)
  Receive Date: 20061128
  Receipt Date: 20061114
  Transmission Date: 20070319
  Serious: Yes (Death)
  Sender: FDA-Public Use
  Company Number: 2006S1000258

PATIENT
  Age: 53 Year
  Sex: Male

DRUGS (6)
  1. CUBICIN [Suspect]
     Indication: ENDOCARDITIS
     Dates: start: 20060101, end: 20060101
  2. CUBICIN [Suspect]
     Indication: ENTEROCOCCAL BACTERAEMIA
     Dates: start: 20060101, end: 20060101
  3. CUBICIN [Suspect]
     Indication: STAPHYLOCOCCAL INFECTION
     Dates: start: 20060101, end: 20060101
  4. VANCOMYCIN [Concomitant]
  5. NAFCILLIN SODIUM [Concomitant]
  6. AMPICILLIN SODIUM [Concomitant]

REACTIONS (4)
  - DRUG RESISTANCE [None]
  - ENDOCARDITIS ENTEROCOCCAL [None]
  - ENTEROCOCCAL BACTERAEMIA [None]
  - RASH [None]
